FAERS Safety Report 21544433 (Version 3)
Quarter: 2022Q4

REPORT INFORMATION
  Report Type: Spontaneous
  Country: CA (occurrence: CA)
  Receive Date: 20221102
  Receipt Date: 20221216
  Transmission Date: 20230113
  Serious: Yes (Death, Other)
  Sender: FDA-Public Use
  Company Number: CA-PFIZER INC-202200123306

PATIENT
  Age: 78 Year
  Sex: Female
  Weight: 55.5 kg

DRUGS (4)
  1. BRAFTOVI [Suspect]
     Active Substance: ENCORAFENIB
     Dosage: 300 MG, 1X/DAY
     Route: 048
     Dates: start: 20220414
  2. BRAFTOVI [Suspect]
     Active Substance: ENCORAFENIB
     Dosage: 275 MG
     Route: 048
  3. BRAFTOVI [Suspect]
     Active Substance: ENCORAFENIB
     Dosage: 225 MG (TAKE 3 CAPSULES OF 75 MG) ONCE DAILY AS DIRECTED)
     Route: 048
  4. CETUXIMAB [Concomitant]
     Active Substance: CETUXIMAB
     Dosage: UNK

REACTIONS (3)
  - Death [Fatal]
  - Sepsis [Unknown]
  - Neoplasm progression [Unknown]

NARRATIVE: CASE EVENT DATE: 20220101
